FAERS Safety Report 10362698 (Version 3)
Quarter: 2014Q3

REPORT INFORMATION
  Report Type: Spontaneous
  Country: US (occurrence: US)
  Receive Date: 20140805
  Receipt Date: 20140829
  Transmission Date: 20150326
  Serious: No
  Sender: FDA-Public Use
  Company Number: US-PFIZER INC-2014214965

PATIENT

DRUGS (2)
  1. EFFEXOR XR [Suspect]
     Active Substance: VENLAFAXINE HYDROCHLORIDE
     Dosage: UNK
  2. EFFEXOR [Suspect]
     Active Substance: VENLAFAXINE HYDROCHLORIDE
     Dosage: UNK

REACTIONS (9)
  - Fatigue [Unknown]
  - Weight increased [Unknown]
  - Dizziness [Unknown]
  - Feeling abnormal [Unknown]
  - Vision blurred [Unknown]
  - Myalgia [Unknown]
  - Irritability [Unknown]
  - Food craving [Unknown]
  - Somnolence [Unknown]
